FAERS Safety Report 21182556 (Version 1)
Quarter: 2022Q3

REPORT INFORMATION
  Report Type: Spontaneous
  Country: JP (occurrence: JP)
  Receive Date: 20220808
  Receipt Date: 20220808
  Transmission Date: 20221027
  Serious: Yes (Other)
  Sender: FDA-Public Use
  Company Number: JP-TAKEDA-2022TJP068723

PATIENT
  Age: 52 Year
  Sex: Female

DRUGS (1)
  1. LEUPLIN [Suspect]
     Active Substance: LEUPROLIDE ACETATE
     Indication: Product used for unknown indication
     Dosage: 22.5 MILLIGRAM, Q6MONTHS
     Route: 058

REACTIONS (1)
  - Puncture site pain [Not Recovered/Not Resolved]

NARRATIVE: CASE EVENT DATE: 20220728
